FAERS Safety Report 18884458 (Version 2)
Quarter: 2022Q3

REPORT INFORMATION
  Report Type: Spontaneous
  Country: US (occurrence: US)
  Receive Date: 20210211
  Receipt Date: 20220806
  Transmission Date: 20221027
  Serious: No
  Sender: FDA-Public Use
  Company Number: US-SA-SAC20210204001304

PATIENT
  Age: 81 Year
  Sex: Male

DRUGS (7)
  1. PLAVIX [Suspect]
     Active Substance: CLOPIDOGREL BISULFATE
     Indication: Product used for unknown indication
     Dosage: UNK
  2. ENZALUTAMIDE [Suspect]
     Active Substance: ENZALUTAMIDE
     Indication: Product used for unknown indication
     Dosage: 160 MG, QD
     Dates: start: 20191015
  3. ENZALUTAMIDE [Suspect]
     Active Substance: ENZALUTAMIDE
     Dosage: 160 MG, QD
     Dates: start: 20200616
  4. ENZALUTAMIDE [Suspect]
     Active Substance: ENZALUTAMIDE
     Dosage: 80 MG, QD
  5. ENZALUTAMIDE [Suspect]
     Active Substance: ENZALUTAMIDE
     Dosage: 40 MG, QD
  6. ENZALUTAMIDE [Suspect]
     Active Substance: ENZALUTAMIDE
     Indication: Prostatic disorder
     Dosage: 40 MG, QD
     Route: 048
  7. ENZALUTAMIDE [Suspect]
     Active Substance: ENZALUTAMIDE
     Dosage: 40 MG, QOD
     Route: 048
     Dates: start: 20220609

REACTIONS (7)
  - Asthenia [Unknown]
  - Cardiac disorder [Unknown]
  - Dizziness [Unknown]
  - Drug interaction [Unknown]
  - Ageusia [Unknown]
  - Off label use [Unknown]
  - Inappropriate schedule of product administration [Unknown]

NARRATIVE: CASE EVENT DATE: 20201119
